FAERS Safety Report 8019401-8 (Version None)
Quarter: 2012Q1

REPORT INFORMATION
  Report Type: 
  Country: None (occurrence: None)
  Receive Date: 20120103
  Receipt Date: 20111220
  Transmission Date: 20120608
  Serious: Yes (Other)
  Sender: FDA-Public Use
  Company Number: PHHY2011FR111115

PATIENT
  Age: 4 Year
  Sex: Female

DRUGS (6)
  1. METHOTREXATE [Concomitant]
  2. CYCLOPHOSPHAMIDE [Concomitant]
  3. ASPIRIN [Concomitant]
  4. CYCLOSPORINE [Suspect]
     Indication: JUVENILE ARTHRITIS
  5. IMMUNE GLOBULIN NOS [Concomitant]
     Route: 042
  6. AZATHIOPRINE [Concomitant]

REACTIONS (9)
  - NEPHRITIC SYNDROME [None]
  - RED BLOOD CELL SEDIMENTATION RATE INCREASED [None]
  - ARTHROPATHY [None]
  - RENAL FAILURE CHRONIC [None]
  - PROTEINURIA [None]
  - ANTINEUTROPHIL CYTOPLASMIC ANTIBODY INCREASED [None]
  - DRUG INEFFECTIVE [None]
  - GLOMERULONEPHRITIS [None]
  - RENAL FAILURE [None]
